FAERS Safety Report 19407762 (Version 1)
Quarter: 2021Q2

REPORT INFORMATION
  Report Type: Spontaneous
  Country: IN (occurrence: IN)
  Receive Date: 20210611
  Receipt Date: 20210611
  Transmission Date: 20210717
  Serious: Yes (Other)
  Sender: FDA-Public Use
  Company Number: IN-BAUSCH-BL-2021-019383

PATIENT
  Age: 42 Year
  Sex: Female

DRUGS (16)
  1. DEXAMETHASONE. [Suspect]
     Active Substance: DEXAMETHASONE
     Indication: COVID-19
     Route: 048
  2. AZITHROMYCIN ANHYDROUS. [Concomitant]
     Active Substance: AZITHROMYCIN ANHYDROUS
     Indication: COVID-19
     Route: 048
  3. PANTOPRAZOLE [Concomitant]
     Active Substance: PANTOPRAZOLE
     Indication: COVID-19
     Route: 048
  4. BUDESONIDE/FORMOTEROL FUMARATE [Suspect]
     Active Substance: BUDESONIDE\FORMOTEROL FUMARATE
     Indication: COVID-19
     Dosage: FORMOTEROL FUMARATE DEHYDRATE AND BUDESONIDE 200 COMBINATION (6 MCG) AND (9200 MCG)
     Route: 055
  5. DOXYCYCLINE. [Concomitant]
     Active Substance: DOXYCYCLINE
     Indication: COVID-19
     Route: 048
  6. REMDESIVIR. [Concomitant]
     Active Substance: REMDESIVIR
     Route: 042
  7. METHYLPREDNISOLONE. [Suspect]
     Active Substance: METHYLPREDNISOLONE
     Indication: COVID-19
     Route: 048
  8. SALBUTAMOL [Concomitant]
     Active Substance: ALBUTEROL
     Indication: COVID-19
     Dosage: ROTACAPS
     Route: 055
  9. HEPARIN [Concomitant]
     Active Substance: HEPARIN SODIUM
     Indication: COVID-19
     Dosage: 5000 UNITS
     Route: 058
  10. IVERMECTIN. [Concomitant]
     Active Substance: IVERMECTIN
     Indication: COVID-19
     Route: 048
  11. DEXAMETHASONE. [Suspect]
     Active Substance: DEXAMETHASONE
     Indication: PRODUCT USE IN UNAPPROVED INDICATION
  12. LEVOCETIRIZINE/MONTELUKAST [Concomitant]
     Indication: COVID-19
     Dosage: MONTELUKAST (10 MG) AND LEVOCETRIZINE (5 MG) COMBINATION
     Route: 048
  13. CEFOPERAZONE/SULBACTAM [Concomitant]
     Active Substance: CEFOPERAZONE\SULBACTAM
     Indication: COVID-19
     Dosage: 1000 MG PLUS 1000 MG
     Route: 042
  14. REMDESIVIR. [Concomitant]
     Active Substance: REMDESIVIR
     Indication: COVID-19
     Dosage: LOADING DOSE
     Route: 042
  15. VITAMIN C [Concomitant]
     Active Substance: ASCORBIC ACID
     Indication: COVID-19
     Route: 048
  16. OXYGEN. [Concomitant]
     Active Substance: OXYGEN
     Indication: COVID-19
     Dosage: 2 LITRES/MINUTE
     Route: 055

REACTIONS (2)
  - Product use in unapproved indication [Unknown]
  - Chorioretinopathy [Recovering/Resolving]
